FAERS Safety Report 22932003 (Version 2)
Quarter: 2023Q4

REPORT INFORMATION
  Report Type: Report from Study
  Country: US (occurrence: US)
  Receive Date: 20230912
  Receipt Date: 20231027
  Transmission Date: 20240110
  Serious: Yes (Hospitalization, Other)
  Sender: FDA-Public Use
  Company Number: US-ABBVIE-5358303

PATIENT
  Sex: Female
  Weight: 122 kg

DRUGS (32)
  1. HUMIRA [Suspect]
     Active Substance: ADALIMUMAB
     Indication: Ankylosing spondylitis
     Dosage: CITRATE FREE
     Route: 058
     Dates: start: 20230221
  2. LEVOTHYROXINE [Concomitant]
     Active Substance: LEVOTHYROXINE
     Indication: Hypothyroidism
     Dosage: STRENGHT-137 UG
     Route: 048
     Dates: start: 2015
  3. LISINOPRIL [Concomitant]
     Active Substance: LISINOPRIL
     Indication: Hypertension
     Dosage: STRENGHT-10MG
     Route: 048
     Dates: start: 2003, end: 202307
  4. LISINOPRIL [Concomitant]
     Active Substance: LISINOPRIL
     Indication: Hypertension
     Route: 048
     Dates: start: 202308
  5. PREGABALIN [Concomitant]
     Active Substance: PREGABALIN
     Indication: Fibromyalgia
     Dosage: STRENGHT-150 MG
     Route: 048
     Dates: start: 2018
  6. VALACYCLOVIR [Concomitant]
     Active Substance: VALACYCLOVIR HYDROCHLORIDE
     Indication: Rash
     Dosage: STRENGTH: 500MG
     Route: 048
     Dates: start: 2018
  7. ASPIRIN [Concomitant]
     Active Substance: ASPIRIN
     Indication: Product used for unknown indication
     Dosage: EC?TAKE NIGHTLY?STRENGTH:81 MG
     Route: 048
     Dates: start: 2019, end: 202307
  8. ASPIRIN [Concomitant]
     Active Substance: ASPIRIN
     Indication: Product used for unknown indication
     Route: 048
     Dates: start: 202308
  9. TOPIRAMATE [Concomitant]
     Active Substance: TOPIRAMATE
     Indication: Migraine
     Dosage: FORM STRENGHT-100 MG
     Route: 048
     Dates: start: 2000
  10. ATORVASTATIN [Concomitant]
     Active Substance: ATORVASTATIN
     Indication: Blood cholesterol increased
     Dosage: EVERY NIGHT?STRENGTH:80 MG
     Route: 048
     Dates: start: 2016
  11. BUSPIRONE [Concomitant]
     Active Substance: BUSPIRONE HYDROCHLORIDE
     Indication: Anxiety
     Dosage: 30 MG IN AM AND 15 MG IN EVENING?STRENGTH: 15 MG
     Route: 048
     Dates: start: 2017
  12. OMEPRAZOLE [Concomitant]
     Active Substance: OMEPRAZOLE
     Indication: Gastrooesophageal reflux disease
     Dosage: TAKE BY MOUTH EVERY MORNING?STRENGTH: 20MG
     Route: 048
     Dates: start: 2000
  13. SUMATRIPTAN [Concomitant]
     Active Substance: SUMATRIPTAN
     Indication: Migraine
     Dosage: TAKE 100MG BY MOUTH AT ONSET OF MIGRAINE AND MAY REPEAT AFTER TWO HOURS IF NO IMPROVEMENT WITH FI...
     Route: 048
     Dates: start: 2021
  14. DICLOFENAC SODIUM [Concomitant]
     Active Substance: DICLOFENAC\DICLOFENAC SODIUM
     Indication: Product used for unknown indication
     Dosage: TIME INTERVAL: 0.33333333 DAYS: APPLY TO PAINFUL AREA THREE TIMES?STRENGTH: 1%
     Route: 061
     Dates: start: 2020
  15. BUPROPION [Concomitant]
     Active Substance: BUPROPION
     Indication: Depression
     Dosage: TAKE EVERY MORNING?STRENGTH: 300MG
     Route: 048
     Dates: start: 2017
  16. NYSTATIN [Concomitant]
     Active Substance: NYSTATIN
     Indication: Product used for unknown indication
     Dosage: 100,000 UNIT/GRAM POWDER AND CREAM?APPLY TO ABDOMEN
     Route: 061
  17. BACLOFEN [Concomitant]
     Active Substance: BACLOFEN
     Indication: Muscle spasms
     Dosage: TIME INTERVAL: 0.33333333 DAYS: STRENGHT-10 MG
     Route: 048
     Dates: start: 2020
  18. TRAMADOL [Concomitant]
     Active Substance: TRAMADOL\TRAMADOL HYDROCHLORIDE
     Indication: Pain
     Dosage: TWICE DAILY AT THIRD AS PRN?STRENGTH:50 MG
     Route: 048
     Dates: start: 2020
  19. PROMETHAZINE [Concomitant]
     Active Substance: PROMETHAZINE HYDROCHLORIDE
     Indication: Nausea
     Dosage: TIME INTERVAL: AS NECESSARY: EVERY 6 HOURS AS NEEDED?STRENGTH: 25 MG
     Route: 048
     Dates: start: 2016
  20. MELOXICAM [Concomitant]
     Active Substance: MELOXICAM
     Indication: Antiinflammatory therapy
     Dosage: STRENGTH: 15 MG
     Route: 048
     Dates: start: 2020
  21. AMITRIPTYLINE [Concomitant]
     Active Substance: AMITRIPTYLINE
     Indication: Neuralgia
     Dosage: AT NIGHT?STRENGTH: 10MG
     Route: 048
     Dates: start: 20230927
  22. CYCLOBENZAPRINE [Concomitant]
     Active Substance: CYCLOBENZAPRINE
     Indication: Pain
     Dosage: STRENGHT-10 MG , TAKE TWO EVERY NIGHT
     Route: 048
     Dates: start: 2020
  23. SOLIFENACIN [Concomitant]
     Active Substance: SOLIFENACIN
     Indication: Product used for unknown indication
     Dosage: STRENGTH:10MG
     Route: 048
     Dates: start: 2022
  24. MYRBETRIQ [Concomitant]
     Active Substance: MIRABEGRON
     Indication: Hypertonic bladder
     Dosage: STRENGTH:50MG
     Route: 048
     Dates: start: 2022
  25. LACTULOSE [Concomitant]
     Active Substance: LACTULOSE
     Indication: Constipation
     Dosage: STRENGHT- 10MG/15 ML
     Route: 048
     Dates: start: 2022
  26. MAGNESIUM CITRATE [Concomitant]
     Active Substance: MAGNESIUM CITRATE
     Indication: Migraine
     Dosage: STRENGTH:100MG
     Route: 048
     Dates: start: 20201124
  27. ALLEGRA [Concomitant]
     Active Substance: FEXOFENADINE HYDROCHLORIDE
     Indication: Hypersensitivity
     Dosage: STRENGTH: 160 MG
     Route: 048
     Dates: start: 2014
  28. VITAMIN D [Concomitant]
     Active Substance: VITAMIN D NOS
     Indication: Vitamin D decreased
     Dosage: 5000 UNIT
     Route: 048
     Dates: start: 2014, end: 202307
  29. VITAMIN D [Concomitant]
     Active Substance: VITAMIN D NOS
     Indication: Vitamin D decreased
     Route: 048
     Dates: start: 202308
  30. LACTOBACILLUS ACIDOPHILUS [Concomitant]
     Active Substance: LACTOBACILLUS ACIDOPHILUS
     Indication: Gastrointestinal disorder
     Dosage: PROBIOTIC ORAL
     Route: 048
     Dates: start: 2016
  31. VITAMIN B COMPLEX [Concomitant]
     Active Substance: CYANOCOBALAMIN\DEXPANTHENOL\NIACINAMIDE\PYRIDOXINE HYDROCHLORIDE\RIBOFLAVIN 5^-PHOSPHATE SODIUM\THIA
     Indication: Asthenia
     Route: 048
     Dates: start: 2014
  32. LIOTHYRONINE [Concomitant]
     Active Substance: LIOTHYRONINE
     Indication: Hypothyroidism
     Dosage: FORM STRENGHT: 5 UG?2 TABLET DAILY
     Route: 048
     Dates: start: 2019

REACTIONS (10)
  - Knee arthroplasty [Recovering/Resolving]
  - Muscle contracture [Recovered/Resolved]
  - Migraine [Recovering/Resolving]
  - Procedural pain [Recovering/Resolving]
  - Insomnia [Unknown]
  - Pain [Recovering/Resolving]
  - Muscle spasms [Recovered/Resolved]
  - Posture abnormal [Recovered/Resolved]
  - Pain [Recovered/Resolved]
  - Fibromyalgia [Unknown]

NARRATIVE: CASE EVENT DATE: 20230101
